FAERS Safety Report 8455017-7 (Version None)
Quarter: 2012Q2

REPORT INFORMATION
  Report Type: 
  Country: None (occurrence: None)
  Receive Date: 20120614
  Receipt Date: 20120614
  Transmission Date: 20120825
  Serious: Yes (Other)
  Sender: FDA-Public Use
  Company Number: None

PATIENT
  Age: 56 Year
  Sex: Female

DRUGS (4)
  1. NUCYNTA [Suspect]
     Indication: PAIN
     Dosage: 150MG 2 TIMES A DAY PO
     Route: 048
     Dates: start: 20120521, end: 20120614
  2. WELLBUTRIN [Concomitant]
  3. XANAX [Concomitant]
  4. OXYCODONE HCL [Concomitant]

REACTIONS (3)
  - DIARRHOEA [None]
  - WEIGHT DECREASED [None]
  - TONGUE COATED [None]
